FAERS Safety Report 12865732 (Version 3)
Quarter: 2018Q4

REPORT INFORMATION
  Report Type: Spontaneous
  Country: US (occurrence: US)
  Receive Date: 20161020
  Receipt Date: 20181012
  Transmission Date: 20190204
  Serious: Yes (Other)
  Sender: FDA-Public Use
  Company Number: US-PFIZER INC-2016486728

PATIENT
  Age: 69 Year
  Sex: Female
  Weight: 79 kg

DRUGS (23)
  1. LYRICA [Suspect]
     Active Substance: PREGABALIN
     Indication: HYPERTENSION
     Dosage: 75 MG, 2X/DAY
     Route: 048
     Dates: start: 2003
  2. ADVAIR HFA [Concomitant]
     Active Substance: FLUTICASONE PROPIONATE\SALMETEROL XINAFOATE
     Indication: ASTHMA
     Dosage: [FLUTICASONE PROPIONATE 250/SALMETEROL XINAFOATE 50] 1 PUFF, 2X/DAY
     Dates: start: 2004
  3. OMEPRAZOLE. [Concomitant]
     Active Substance: OMEPRAZOLE
     Indication: DYSPEPSIA
     Dosage: 20 MG, 1X/DAY
  4. CENTRUM SILVER [Concomitant]
     Active Substance: MINERALS\VITAMINS
     Dosage: 1 DF, DAILY
  5. FERREX 150 FORTE [Concomitant]
     Active Substance: CYANOCOBALAMIN\FOLIC ACID\IRON
     Indication: IRON DEFICIENCY
     Dosage: 150 MG, 1X/DAY (1 DAILY AM)
  6. CITRACAL [Concomitant]
     Active Substance: CALCIUM CITRATE
     Dosage: UNK UNK, 2X/DAY
  7. ATIVAN [Concomitant]
     Active Substance: LORAZEPAM
  8. CALCIUM [Concomitant]
     Active Substance: CALCIUM
     Dosage: 1 DF, DAILY
  9. LYRICA [Suspect]
     Active Substance: PREGABALIN
     Dosage: 75 MG, 2X/DAY
  10. ASPIRIN 81 [Concomitant]
     Active Substance: ASPIRIN
     Dosage: LOW DOSE, 1X/DAY
  11. VITAMIN B6 [Concomitant]
     Active Substance: PYRIDOXINE HYDROCHLORIDE
     Dosage: UNK
  12. BAYER ASPIRIN [Concomitant]
     Active Substance: ASPIRIN
     Dosage: LOW DOSE, 1X/DAY
  13. LYRICA [Suspect]
     Active Substance: PREGABALIN
     Indication: FIBROMYALGIA
     Dosage: 75 MG, 2X/DAY (AM/ PM)
     Route: 048
     Dates: start: 2000
  14. FERREX 150 FORTE [Concomitant]
     Active Substance: CYANOCOBALAMIN\FOLIC ACID\IRON
     Indication: ANAEMIA
  15. ATENOLOL. [Concomitant]
     Active Substance: ATENOLOL
     Indication: HYPERTENSION
     Dosage: 50 MG, 1X/DAY
     Dates: start: 1998
  16. TENORMIN [Concomitant]
     Active Substance: ATENOLOL
     Dosage: 50 MG, DAILY 2 HOURS BEFORE BEDTIME + ATIVAN
  17. PRESERVISION [Concomitant]
     Active Substance: MINERALS\VITAMINS
     Indication: EYE DISORDER
     Dosage: 150 UNK, 2X/DAY
  18. STOOL SOFTENER (DOCUSATE) [Concomitant]
     Active Substance: DOCUSATE
     Dosage: 6 UNK, DAILY
  19. LOSARTAN AND HYDROCHLOROTHIAZIDE [Concomitant]
     Active Substance: HYDROCHLOROTHIAZIDE\LOSARTAN POTASSIUM
     Indication: HYPERTENSION
     Dosage: [HYDROCHLORTHIAZIDE 50/LOSARTAN POTASSIUM 125], DAILY
  20. OMEPRAZOLE. [Concomitant]
     Active Substance: OMEPRAZOLE
     Dosage: HFA 90 MG, AS NEEDED
  21. OMEGA XL [Concomitant]
     Active Substance: DIETARY SUPPLEMENT
     Dosage: UNK UNK, DAILY
  22. VITAMIN D [Concomitant]
     Active Substance: CHOLECALCIFEROL
     Dosage: 2000 UNK, DAILY
  23. PROVENTIL [Concomitant]
     Active Substance: ALBUTEROL
     Dosage: 90 MG, AS NEEDED

REACTIONS (1)
  - Blindness [Recovered/Resolved]

NARRATIVE: CASE EVENT DATE: 2007
